FAERS Safety Report 10501670 (Version 6)
Quarter: 2015Q4

REPORT INFORMATION
  Report Type: Report from Study
  Country: US (occurrence: US)
  Receive Date: 20141007
  Receipt Date: 20151117
  Transmission Date: 20160304
  Serious: Yes (Hospitalization, Other)
  Sender: FDA-Public Use
  Company Number: US-ACTELION-A-NJ2014-104025

PATIENT
  Age: 69 Year
  Sex: Female

DRUGS (5)
  1. NITRIC OXIDE. [Concomitant]
     Active Substance: NITRIC OXIDE
  2. FLOLAN [Suspect]
     Active Substance: EPOPROSTENOL SODIUM
     Indication: PULMONARY ARTERIAL HYPERTENSION
     Dosage: 39.6 NG/KG, PER MIN
     Route: 042
  3. MACITENTAN [Suspect]
     Active Substance: MACITENTAN
     Indication: PULMONARY ARTERIAL HYPERTENSION
     Dosage: 10 MG, QD
     Route: 048
     Dates: start: 20140417
  4. RIOCIGUAT [Suspect]
     Active Substance: RIOCIGUAT
     Indication: PRODUCT USED FOR UNKNOWN INDICATION
     Dosage: UNK
     Route: 065
  5. WARFARIN [Concomitant]
     Active Substance: WARFARIN

REACTIONS (14)
  - Condition aggravated [Unknown]
  - Peripheral swelling [Unknown]
  - Fluid retention [Unknown]
  - Pulmonary arterial hypertension [Unknown]
  - Hypoxia [Unknown]
  - Weight decreased [Unknown]
  - Haemoptysis [Unknown]
  - Pancreatic neoplasm [Unknown]
  - Cardiac murmur [Unknown]
  - Abdominal distension [Unknown]
  - Hepatic neoplasm [Unknown]
  - Fluid overload [Unknown]
  - Pulmonary arterial pressure abnormal [Unknown]
  - Disease progression [Unknown]
